FAERS Safety Report 6554635-0 (Version None)
Quarter: 2010Q1

REPORT INFORMATION
  Report Type: 
  Country: None (occurrence: None)
  Receive Date: 20100127
  Receipt Date: 20100119
  Transmission Date: 20100710
  Serious: Yes (Other)
  Sender: FDA-Public Use
  Company Number: US-PFIZER INC-2009313151

PATIENT
  Sex: Male

DRUGS (1)
  1. LIPITOR [Suspect]
     Dosage: UNK

REACTIONS (5)
  - ARTHRALGIA [None]
  - BLOOD TEST ABNORMAL [None]
  - HYPOAESTHESIA [None]
  - MUSCLE ATROPHY [None]
  - MYALGIA [None]
